FAERS Safety Report 6357523-8 (Version None)
Quarter: 2009Q3

REPORT INFORMATION
  Report Type: 
  Country: None (occurrence: None)
  Receive Date: 20090916
  Receipt Date: 20071220
  Transmission Date: 20100115
  Serious: Yes (Other)
  Sender: FDA-Public Use
  Company Number: US-ASTRAZENECA-2007UW12878

PATIENT
  Age: 15393 Day
  Sex: Female
  Weight: 78 kg

DRUGS (15)
  1. SEROQUEL [Suspect]
     Indication: PANIC DISORDER
     Dosage: 25-100 MG
     Route: 048
     Dates: start: 20030509
  2. SEROQUEL [Suspect]
     Indication: SLEEP DISORDER
     Dosage: 25-100 MG
     Route: 048
     Dates: start: 20030509
  3. SEROQUEL [Suspect]
     Indication: ANXIETY
     Dosage: 25-100 MG
     Route: 048
     Dates: start: 20030509
  4. SEROQUEL [Suspect]
     Indication: HALLUCINATION
     Dosage: 25-100 MG
     Route: 048
     Dates: start: 20030509
  5. ZYPREXA [Concomitant]
     Indication: PANIC DISORDER
     Dosage: 5-30 MG
     Dates: start: 20010326
  6. ABILIFY [Concomitant]
  7. ZOLOFT [Concomitant]
     Dates: start: 19991230
  8. XANAX [Concomitant]
  9. LITHIUM CARBONATE [Concomitant]
  10. DEPAKOTE ER [Concomitant]
     Indication: AFFECTIVE DISORDER
     Dosage: 500-1000 MG
     Dates: start: 19970801
  11. PROZAC [Concomitant]
     Dosage: 10-20 MG
     Dates: start: 20000622
  12. WELLBUTRIN SR [Concomitant]
     Indication: ANTIDEPRESSANT THERAPY
     Route: 048
     Dates: start: 20030520
  13. TRAZODONE [Concomitant]
     Indication: SLEEP DISORDER
     Dosage: 50-100 MG
     Dates: start: 20030305
  14. METHYLPREDNISOLONE [Concomitant]
     Dates: start: 20040709
  15. RISPERIDONE [Concomitant]
     Route: 048
     Dates: start: 20020204

REACTIONS (4)
  - BLOOD CHOLESTEROL INCREASED [None]
  - MUSCLE SPASMS [None]
  - NEUROPATHY PERIPHERAL [None]
  - TYPE 2 DIABETES MELLITUS [None]
